FAERS Safety Report 17390083 (Version 2)
Quarter: 2020Q1

REPORT INFORMATION
  Report Type: Spontaneous
  Country: DE (occurrence: DE)
  Receive Date: 20200207
  Receipt Date: 20200218
  Transmission Date: 20200409
  Serious: Yes (Congenital Anomaly, Other)
  Sender: FDA-Public Use
  Company Number: DE-MYLANLABS-2020M1013298

PATIENT
  Sex: Male
  Weight: 3.6 kg

DRUGS (5)
  1. LAMOTRIGINE. [Suspect]
     Active Substance: LAMOTRIGINE
     Indication: FOETAL EXPOSURE DURING PREGNANCY
     Dosage: MATERNAL DOSE: 700 [MG/D (225-225-250) ]/ FOR TWO YEARS
     Route: 064
     Dates: start: 20100811
  2. FOLSAEURE [Concomitant]
     Active Substance: FOLIC ACID
     Indication: FOETAL EXPOSURE DURING PREGNANCY
     Dosage: UNK (5 MG/D)
     Route: 064
  3. VIMPAT [Suspect]
     Active Substance: LACOSAMIDE
     Dosage: MATERNAL DOSE: 200 [MG/D (100-0-100) ]/ FOR ONE YEAR
     Route: 064
     Dates: start: 200911
  4. LAMOTRIGINE. [Suspect]
     Active Substance: LAMOTRIGINE
     Dosage: MATERNAL DOSE: 700 [MG/D (225-225-250) ]/ FOR TWO YEARS
     Route: 064
     Dates: start: 20091111
  5. VIMPAT [Suspect]
     Active Substance: LACOSAMIDE
     Indication: FOETAL EXPOSURE DURING PREGNANCY
     Dosage: MATERNAL DOSE: 200 [MG/D (100-0-100) ]/ FOR ONE YEAR
     Route: 064
     Dates: start: 20100811

REACTIONS (5)
  - Bradycardia neonatal [Recovered/Resolved]
  - Coarctation of the aorta [Unknown]
  - Hyperbilirubinaemia [Unknown]
  - Foetal exposure during pregnancy [Unknown]
  - Atrial septal defect [Unknown]

NARRATIVE: CASE EVENT DATE: 2010
